FAERS Safety Report 19044792 (Version 1)
Quarter: 2021Q1

REPORT INFORMATION
  Report Type: Spontaneous
  Country: US (occurrence: US)
  Receive Date: 20210323
  Receipt Date: 20210323
  Transmission Date: 20210420
  Serious: Yes (Other)
  Sender: FDA-Public Use
  Company Number: None

PATIENT
  Age: 28 Year
  Sex: Female
  Weight: 49.9 kg

DRUGS (2)
  1. PARAGARD T 380A [Suspect]
     Active Substance: COPPER
  2. BIOTIN HAIR, SKIN, AND NAILS VITAMIN [Concomitant]

REACTIONS (6)
  - Uterine haemorrhage [None]
  - Vulvovaginal mycotic infection [None]
  - Device dislocation [None]
  - Ovarian cyst [None]
  - Complication of device removal [None]
  - Device breakage [None]

NARRATIVE: CASE EVENT DATE: 20210318
